FAERS Safety Report 9197643 (Version 2)
Quarter: 2013Q2

REPORT INFORMATION
  Report Type: Spontaneous
  Country: IT (occurrence: IT)
  Receive Date: 20130328
  Receipt Date: 20130423
  Transmission Date: 20140414
  Serious: Yes (Life-Threatening, Hospitalization)
  Sender: FDA-Public Use
  Company Number: IT-BRISTOL-MYERS SQUIBB COMPANY-18710483

PATIENT
  Age: 80 Year
  Sex: Female

DRUGS (4)
  1. COUMADIN TABS 5 MG [Suspect]
     Indication: ATRIAL FIBRILLATION
     Route: 048
     Dates: start: 20080101, end: 20121002
  2. ALDACTONE [Concomitant]
     Dosage: TAB
     Route: 048
  3. TRIATEC [Concomitant]
     Dosage: TAB
     Route: 048
  4. LASIX [Concomitant]
     Dosage: 25 MG TAB
     Route: 048

REACTIONS (3)
  - Cerebellar haemorrhage [Not Recovered/Not Resolved]
  - International normalised ratio increased [Not Recovered/Not Resolved]
  - Anaemia [Not Recovered/Not Resolved]
